FAERS Safety Report 20906085 (Version 1)
Quarter: 2022Q2

REPORT INFORMATION
  Report Type: Spontaneous
  Country: US (occurrence: US)
  Receive Date: 20220602
  Receipt Date: 20220602
  Transmission Date: 20220720
  Serious: Yes (Other)
  Sender: FDA-Public Use
  Company Number: US-COLLEGIUM PHARMACEUTICAL, INC.-2022CGM00227

PATIENT
  Age: 60 Year
  Sex: Female
  Weight: 56.689 kg

DRUGS (5)
  1. XTAMPZA ER [Suspect]
     Active Substance: OXYCODONE
     Indication: Cystitis interstitial
     Dosage: 13.5 MG, 2X/DAY (EVERY 12 HOURS)
     Route: 048
     Dates: start: 20220328, end: 20220406
  2. XTAMPZA ER [Suspect]
     Active Substance: OXYCODONE
     Indication: Pain
  3. XTAMPZA ER [Suspect]
     Active Substance: OXYCODONE
     Indication: Cystitis interstitial
     Dosage: 18 MG, 2X/DAY (EVERY 12 HOURS)
     Route: 048
     Dates: start: 20220407
  4. XTAMPZA ER [Suspect]
     Active Substance: OXYCODONE
     Indication: Pain
  5. ESTRADIOL [Concomitant]
     Active Substance: ESTRADIOL
     Dosage: 2 MG, 1X/DAY

REACTIONS (3)
  - Withdrawal syndrome [Recovering/Resolving]
  - Dyspepsia [Recovering/Resolving]
  - Therapeutic product effect incomplete [Recovering/Resolving]

NARRATIVE: CASE EVENT DATE: 20220328
